FAERS Safety Report 7770026-9 (Version None)
Quarter: 2011Q3

REPORT INFORMATION
  Report Type: 
  Country: None (occurrence: None)
  Receive Date: 20110922
  Receipt Date: 20100826
  Transmission Date: 20111222
  Serious: No
  Sender: FDA-Public Use
  Company Number: US-ASTRAZENECA-2009UW00791

PATIENT
  Age: 26 Year
  Sex: Female

DRUGS (8)
  1. SEROQUEL [Suspect]
     Indication: DEPRESSION
     Dosage: 25-100 MG/DAY
     Route: 048
     Dates: start: 20040101
  2. SEROQUEL [Suspect]
     Dosage: 25 TO 50 MG
     Route: 048
     Dates: start: 20050901
  3. SEROQUEL [Suspect]
     Dosage: 25 TO 50 MG
     Route: 048
     Dates: start: 20050901
  4. SEROQUEL [Suspect]
     Indication: ANXIETY
     Dosage: 25-100 MG/DAY
     Route: 048
     Dates: start: 20040101
  5. SEROQUEL [Suspect]
     Dosage: 25 TO 50 MG
     Route: 048
     Dates: start: 20050901
  6. SEROQUEL [Suspect]
     Dosage: 25 TO 50 MG
     Route: 048
     Dates: start: 20050901
  7. SEROQUEL [Suspect]
     Indication: BIPOLAR DISORDER
     Dosage: 25-100 MG/DAY
     Route: 048
     Dates: start: 20040101
  8. SEROQUEL [Suspect]
     Indication: SLEEP DISORDER
     Dosage: 25-100 MG/DAY
     Route: 048
     Dates: start: 20040101

REACTIONS (2)
  - GESTATIONAL DIABETES [None]
  - DIABETES MELLITUS [None]
